FAERS Safety Report 6042428-2 (Version None)
Quarter: 2009Q1

REPORT INFORMATION
  Report Type: 
  Country: None (occurrence: None)
  Receive Date: 20090116
  Receipt Date: 20090105
  Transmission Date: 20090719
  Serious: Yes (Hospitalization)
  Sender: FDA-Public Use
  Company Number: GB-B.I. PHARMACEUTICALS,INC./RIDGEFIELD-2008-UK-01451UK

PATIENT
  Sex: Male

DRUGS (6)
  1. MIRAPEX [Suspect]
     Indication: PARKINSON'S DISEASE
     Dosage: 1.05MG
     Route: 048
     Dates: start: 20080415
  2. IRON [Concomitant]
  3. ANTIBIOTICS [Concomitant]
  4. TAMSULOSIN HCL [Concomitant]
     Indication: BENIGN PROSTATIC HYPERPLASIA
     Dosage: 400MCG
     Route: 048
     Dates: start: 20050823
  5. SELEGILINE HCL [Concomitant]
     Indication: PARKINSON'S DISEASE
     Dosage: 10MG
     Route: 048
     Dates: start: 20061212, end: 20080401
  6. ROHGONE [Concomitant]
     Indication: PARKINSON'S DISEASE
     Dosage: 2MG
     Dates: start: 20080123, end: 20080304

REACTIONS (4)
  - ECZEMA [None]
  - GLUCAGONOMA [None]
  - HYPOTENSION [None]
  - WEIGHT DECREASED [None]
